FAERS Safety Report 11391495 (Version 1)
Quarter: 2015Q3

REPORT INFORMATION
  Report Type: Spontaneous
  Country: US (occurrence: None)
  Receive Date: 20150814
  Receipt Date: 20150814
  Transmission Date: 20151125
  Serious: No
  Sender: FDA-Public Use
  Company Number: None

PATIENT
  Age: 25 Year
  Sex: Female

DRUGS (1)
  1. INDOMETHACIN 50MG MYLAN [Suspect]
     Active Substance: INDOMETHACIN
     Indication: JOINT INJURY
     Route: 048
     Dates: start: 20150806, end: 20150809

REACTIONS (6)
  - Vision blurred [None]
  - Dysarthria [None]
  - Hypertension [None]
  - Limb discomfort [None]
  - Discomfort [None]
  - Migraine [None]

NARRATIVE: CASE EVENT DATE: 20150806
